FAERS Safety Report 13968472 (Version 3)
Quarter: 2017Q4

REPORT INFORMATION
  Report Type: Report from Study
  Country: KR (occurrence: KR)
  Receive Date: 20170914
  Receipt Date: 20171025
  Transmission Date: 20180320
  Serious: Yes (Hospitalization)
  Sender: FDA-Public Use
  Company Number: KR-ASTELLAS-2016US039671AA

PATIENT
  Age: 23 Year
  Sex: Male

DRUGS (4)
  1. SOLONDO [Suspect]
     Active Substance: PREDNISOLONE
     Indication: NEPHROTIC SYNDROME
     Route: 048
     Dates: start: 20161001, end: 20161002
  2. TACROLIMUS. [Suspect]
     Active Substance: TACROLIMUS
     Dosage: 7 MG DAILY DOSE, TWICE DAILY
     Route: 048
     Dates: start: 20161004, end: 20161005
  3. TACROLIMUS. [Suspect]
     Active Substance: TACROLIMUS
     Indication: NEPHROTIC SYNDROME
     Dosage: 7 MG DAILY DOSE, TWICE DAILY
     Route: 048
     Dates: start: 20161001, end: 20161002
  4. SOLONDO [Suspect]
     Active Substance: PREDNISOLONE
     Route: 048
     Dates: start: 20161004, end: 20161005

REACTIONS (1)
  - Gastrointestinal disorder [Recovered/Resolved]

NARRATIVE: CASE EVENT DATE: 20161003
